FAERS Safety Report 8567275-9 (Version None)
Quarter: 2012Q3

REPORT INFORMATION
  Report Type: 
  Country: None (occurrence: None)
  Receive Date: 20120803
  Receipt Date: 20110830
  Transmission Date: 20120928
  Serious: No
  Sender: FDA-Public Use
  Company Number: US-ABBOTT-11P-163-0850399-00

PATIENT
  Sex: Female
  Weight: 136.2 kg

DRUGS (6)
  1. HUMULIN R [Concomitant]
     Indication: DIABETES MELLITUS
  2. LISINOPRIL [Concomitant]
     Indication: BLOOD PRESSURE
  3. METFORMIN HCL [Concomitant]
     Indication: DIABETES MELLITUS
  4. NIASPAN [Suspect]
     Route: 048
     Dates: start: 20110826
  5. VERAPAMIL [Concomitant]
     Indication: BLOOD PRESSURE
  6. NIASPAN [Suspect]
     Indication: BLOOD CHOLESTEROL INCREASED
     Route: 048
     Dates: start: 20110701, end: 20110825

REACTIONS (5)
  - TREMOR [None]
  - FLUSHING [None]
  - PARAESTHESIA [None]
  - POLLAKIURIA [None]
  - HYPERHIDROSIS [None]
